FAERS Safety Report 6204555-6 (Version None)
Quarter: 2009Q2

REPORT INFORMATION
  Report Type: 
  Country: None (occurrence: None)
  Receive Date: 20090527
  Receipt Date: 20090428
  Transmission Date: 20091009
  Serious: Yes (Other)
  Sender: FDA-Public Use
  Company Number: JP-JNJFOC-20081206634

PATIENT
  Sex: Male
  Weight: 104 kg

DRUGS (4)
  1. TOPINA [Suspect]
     Indication: EPILEPSY
     Route: 048
  2. CARBAMAZEPINE [Concomitant]
     Indication: EPILEPSY
     Route: 048
  3. PHENYTOIN [Concomitant]
     Route: 048
  4. PHENYTOIN [Concomitant]
     Indication: EPILEPSY
     Route: 048

REACTIONS (6)
  - ANXIETY [None]
  - DELUSION [None]
  - DIZZINESS [None]
  - HEADACHE [None]
  - HYPOAESTHESIA [None]
  - MEMORY IMPAIRMENT [None]
